FAERS Safety Report 9643560 (Version 3)
Quarter: 2013Q4

REPORT INFORMATION
  Report Type: Spontaneous
  Country: US (occurrence: US)
  Receive Date: 20131024
  Receipt Date: 20131210
  Transmission Date: 20140711
  Serious: Yes (Hospitalization)
  Sender: FDA-Public Use
  Company Number: US-GLAXOSMITHKLINE-A0913496A

PATIENT
  Age: 62 Year
  Sex: Male
  Weight: 112.7 kg

DRUGS (2)
  1. AVANDIA [Suspect]
     Indication: DIABETES MELLITUS
     Route: 048
     Dates: start: 200002, end: 201005
  2. AVANDAMET [Suspect]
     Indication: DIABETES MELLITUS
     Route: 048
     Dates: start: 200601, end: 200602

REACTIONS (4)
  - Cerebrovascular accident [Not Recovered/Not Resolved]
  - Renal failure acute [Unknown]
  - Cardiovascular disorder [Unknown]
  - Cardiac disorder [Unknown]
